FAERS Safety Report 5945203-X (Version None)
Quarter: 2008Q4

REPORT INFORMATION
  Report Type: 
  Country: None (occurrence: None)
  Receive Date: 20081107
  Receipt Date: 20081104
  Transmission Date: 20090506
  Serious: Yes (Hospitalization)
  Sender: FDA-Public Use
  Company Number: D0059312A

PATIENT

DRUGS (1)
  1. FLUTIDE [Suspect]
     Route: 055

REACTIONS (5)
  - ABNORMAL BEHAVIOUR [None]
  - AGGRESSION [None]
  - FEAR [None]
  - IMPULSIVE BEHAVIOUR [None]
  - SLEEP DISORDER [None]
